FAERS Safety Report 8516830-0 (Version None)
Quarter: 2012Q3

REPORT INFORMATION
  Report Type: 
  Country: None (occurrence: None)
  Receive Date: 20120718
  Receipt Date: 20120712
  Transmission Date: 20120928
  Serious: Yes (Death)
  Sender: FDA-Public Use
  Company Number: ES-SANOFI-AVENTIS-2012SA049899

PATIENT
  Age: 55 Year
  Sex: Male
  Weight: 60 kg

DRUGS (9)
  1. ONDANSETRON [Concomitant]
     Route: 042
  2. I.V. SOLUTIONS [Concomitant]
     Dosage: DOSE: 3.50 %
     Route: 042
  3. LACTULOSE [Concomitant]
     Route: 048
  4. CISPLATIN [Suspect]
     Dosage: UNIT DOSE: 75 MG/M2
     Route: 042
     Dates: start: 20120516, end: 20120516
  5. DEXAMETHASONE [Concomitant]
     Route: 042
  6. PANTOPRAZOLE [Concomitant]
     Route: 042
  7. DOCETAXEL [Suspect]
     Dosage: UNIT DOSE: 75 MG/M2
     Route: 042
     Dates: start: 20120516, end: 20120516
  8. FLUOROURACIL [Suspect]
     Dosage: UNIT DOSE: 750 MG/M2
     Route: 042
     Dates: start: 20120516, end: 20120520
  9. FUROSEMIDE [Concomitant]
     Route: 042

REACTIONS (1)
  - SUDDEN DEATH [None]
